FAERS Safety Report 7687796-0 (Version None)
Quarter: 2011Q3

REPORT INFORMATION
  Report Type: 
  Country: None (occurrence: None)
  Receive Date: 20110817
  Receipt Date: 20110805
  Transmission Date: 20111222
  Serious: Yes (Other)
  Sender: FDA-Public Use
  Company Number: US-ELI_LILLY_AND_COMPANY-US201101006256

PATIENT
  Age: 71 Year
  Sex: Female

DRUGS (2)
  1. FORTEO [Suspect]
     Indication: OSTEOPOROSIS
     Dosage: 20 UG, DAILY (1/D)
     Dates: start: 20110120
  2. FORTEO [Suspect]
     Dosage: 20 UG, QD
     Dates: end: 20110715

REACTIONS (4)
  - DRUG DOSE OMISSION [None]
  - LYMPHOMA [None]
  - AXILLARY MASS [None]
  - INJECTION SITE ERYTHEMA [None]
